FAERS Safety Report 5121396-1 (Version None)
Quarter: 2006Q4

REPORT INFORMATION
  Report Type: 
  Country: None (occurrence: None)
  Receive Date: 20061002
  Receipt Date: 20060920
  Transmission Date: 20070319
  Serious: Yes (Other)
  Sender: FDA-Public Use
  Company Number: SPV1-2006-00867

PATIENT
  Sex: Male

DRUGS (1)
  1. ADDERALL 12.5 [Suspect]
     Dosage: 40 MG DAILY; SEE IMAGE

REACTIONS (7)
  - CHEST PAIN [None]
  - DISTURBANCE IN ATTENTION [None]
  - DRUG INEFFECTIVE [None]
  - HYPOAESTHESIA [None]
  - PARALYSIS [None]
  - PRESCRIBED OVERDOSE [None]
  - SLUGGISHNESS [None]
